FAERS Safety Report 9396234 (Version 2)
Quarter: 2013Q3

REPORT INFORMATION
  Report Type: Spontaneous
  Country: US (occurrence: US)
  Receive Date: 20130711
  Receipt Date: 20130724
  Transmission Date: 20140515
  Serious: Yes (Other)
  Sender: FDA-Public Use
  Company Number: US-BAYER-2013-083253

PATIENT
  Age: 76 Year
  Sex: Male
  Weight: 63.49 kg

DRUGS (5)
  1. BAYER HEADACHE RELIEF [Suspect]
     Indication: HEADACHE
     Dosage: UNK DF, UNK
     Route: 048
  2. BAYER HEADACHE RELIEF [Suspect]
     Indication: HEADACHE
     Dosage: 8 TO 10 PILLS A DAY, PRN
  3. BAYER MIGRAINE FORMULA [Suspect]
     Dosage: 2 DF, PRN
     Route: 048
     Dates: start: 201307
  4. TYLENOL [PARACETAMOL] [Concomitant]
  5. VITAMIN B12 [Concomitant]
     Dosage: UNK

REACTIONS (6)
  - Rectal haemorrhage [Recovered/Resolved]
  - Nausea [Recovered/Resolved]
  - Extra dose administered [None]
  - Extra dose administered [None]
  - Epistaxis [Recovered/Resolved]
  - Inappropriate schedule of drug administration [None]
